FAERS Safety Report 4796834-4 (Version None)
Quarter: 2005Q4

REPORT INFORMATION
  Report Type: 
  Country: None (occurrence: None)
  Receive Date: 20051011
  Receipt Date: 20051011
  Transmission Date: 20060501
  Serious: Yes (Hospitalization, Disabling)
  Sender: FDA-Public Use
  Company Number: None

PATIENT
  Age: 81 Year
  Sex: Female

DRUGS (7)
  1. WARFARIN [Suspect]
     Indication: ATRIAL FIBRILLATION
  2. ALBUTEROL [Concomitant]
  3. FLOVENT [Concomitant]
  4. NEXIUM [Concomitant]
  5. SINGULAIR [Concomitant]
  6. FLONASE [Concomitant]
  7. DIGOXIN [Concomitant]

REACTIONS (3)
  - ATRIAL FIBRILLATION [None]
  - CEREBELLAR HAEMORRHAGE [None]
  - HYDROCEPHALUS [None]
